FAERS Safety Report 5136471-5 (Version None)
Quarter: 2006Q4

REPORT INFORMATION
  Report Type: 
  Country: None (occurrence: None)
  Receive Date: 20061027
  Receipt Date: 20061017
  Transmission Date: 20070319
  Serious: Yes (Hospitalization, Other)
  Sender: FDA-Public Use
  Company Number: CA-ABBOTT-06P-028-0347977-00

PATIENT
  Age: 49 Year
  Sex: Female

DRUGS (10)
  1. RITONAVIR [Suspect]
     Indication: SYSTEMIC ANTIVIRAL TREATMENT
     Route: 065
  2. CARBAMAZEPINE [Interacting]
     Indication: PARTIAL SEIZURES
     Route: 065
  3. CARBAMAZEPINE [Interacting]
     Route: 065
  4. CARBAMAZEPINE [Interacting]
     Route: 065
  5. CARBAMAZEPINE [Interacting]
     Route: 065
  6. SAQUINAVIR [Suspect]
     Indication: SYSTEMIC ANTIVIRAL TREATMENT
     Route: 065
  7. EFAVIRENZ [Suspect]
     Indication: SYSTEMIC ANTIVIRAL TREATMENT
     Route: 065
  8. ZIDOVUDINE [Concomitant]
     Indication: SYSTEMIC ANTIVIRAL TREATMENT
     Route: 065
  9. LAMIVUDINE [Concomitant]
     Indication: SYSTEMIC ANTIVIRAL TREATMENT
     Route: 065
  10. INDINIVIR SULFATE [Concomitant]
     Indication: SYSTEMIC ANTIVIRAL TREATMENT
     Route: 065

REACTIONS (7)
  - ABASIA [None]
  - COORDINATION ABNORMAL [None]
  - DRUG INTERACTION [None]
  - DRUG LEVEL BELOW THERAPEUTIC [None]
  - DRUG TOXICITY [None]
  - HEMIPARESIS [None]
  - HYPONATRAEMIA [None]
